FAERS Safety Report 9027362 (Version 1)
Quarter: 2013Q1

REPORT INFORMATION
  Report Type: Spontaneous
  Country: US (occurrence: US)
  Receive Date: 20130123
  Receipt Date: 20130123
  Transmission Date: 20140127
  Serious: No
  Sender: FDA-Public Use
  Company Number: US-009507513-1210USA006621

PATIENT
  Sex: Female
  Weight: 118 kg

DRUGS (1)
  1. SYLATRON [Suspect]
     Indication: MALIGNANT MELANOMA STAGE III
     Dosage: UNK
     Dates: start: 201107

REACTIONS (1)
  - Vision blurred [Not Recovered/Not Resolved]
